FAERS Safety Report 16879205 (Version 2)
Quarter: 2019Q4

REPORT INFORMATION
  Report Type: Spontaneous
  Country: US (occurrence: US)
  Receive Date: 20191003
  Receipt Date: 20191015
  Transmission Date: 20200122
  Serious: Yes (Hospitalization)
  Sender: FDA-Public Use
  Company Number: US-BEH-2019107387

PATIENT
  Sex: Male

DRUGS (4)
  1. HUMATE-P [Suspect]
     Active Substance: HUMAN COAGULATION FACTOR VIII/VON WILLEBRAND FACTOR COMPLEX
     Indication: FACTOR VIII DEFICIENCY
     Dosage: 1851 INTERNATIONAL UNIT, TIW
     Route: 042
     Dates: start: 20131230
  2. HUMATE-P [Suspect]
     Active Substance: HUMAN COAGULATION FACTOR VIII/VON WILLEBRAND FACTOR COMPLEX
     Dosage: 649 INTERNATIONAL UNIT, TIW
     Route: 042
     Dates: start: 20131230
  3. HUMATE-P [Suspect]
     Active Substance: HUMAN COAGULATION FACTOR VIII/VON WILLEBRAND FACTOR COMPLEX
     Indication: FACTOR VIII DEFICIENCY
     Dosage: 1851 INTERNATIONAL UNIT, TIW
     Route: 042
     Dates: start: 20131230
  4. HUMATE-P [Suspect]
     Active Substance: HUMAN COAGULATION FACTOR VIII/VON WILLEBRAND FACTOR COMPLEX
     Dosage: 649 INTERNATIONAL UNIT, TIW
     Route: 042
     Dates: start: 20131230

REACTIONS (4)
  - Road traffic accident [Unknown]
  - Concussion [Unknown]
  - Traumatic haemorrhage [Unknown]
  - Limb injury [Unknown]
